FAERS Safety Report 5917543-1 (Version None)
Quarter: 2008Q4

REPORT INFORMATION
  Report Type: 
  Country: None (occurrence: None)
  Receive Date: 20081010
  Receipt Date: 20081010
  Transmission Date: 20090506
  Serious: Yes (Other)
  Sender: FDA-Public Use
  Company Number: None

PATIENT
  Sex: Female
  Weight: 64.8644 kg

DRUGS (3)
  1. KEPPRA [Suspect]
     Indication: CONVULSION
     Dosage: 1500MG BID PO
     Route: 048
  2. TEGRETOL [Suspect]
     Indication: CONVULSION
     Dosage: 500MG BID PO
     Route: 048
  3. DETROL LA [Suspect]
     Indication: POLLAKIURIA
     Dosage: PRN PO
     Route: 048

REACTIONS (2)
  - CONDITION AGGRAVATED [None]
  - CONVULSION [None]
